FAERS Safety Report 6362762-6 (Version None)
Quarter: 2009Q3

REPORT INFORMATION
  Report Type: 
  Country: None (occurrence: None)
  Receive Date: 20090919
  Receipt Date: 20090605
  Transmission Date: 20100115
  Serious: No
  Sender: FDA-Public Use
  Company Number: US-ABBOTT-09P-163-0578675-00

PATIENT
  Sex: Female
  Weight: 81.72 kg

DRUGS (13)
  1. HUMIRA [Suspect]
     Indication: PYODERMA GANGRENOSUM
     Dosage: (80MG LOADING DOSE)
     Route: 058
     Dates: start: 20090601, end: 20090601
  2. HUMIRA [Suspect]
     Route: 058
  3. PREDNISONE [Suspect]
     Indication: PYODERMA GANGRENOSUM
     Dosage: 80 MG DAILY,
     Dates: end: 20090601
  4. PREDNISONE [Suspect]
     Dosage: WEANING OFF SLOWLY
     Route: 048
  5. CYCLOSPORINE [Concomitant]
     Indication: PYODERMA GANGRENOSUM
     Route: 048
  6. CYCLOSPORINE [Concomitant]
     Route: 048
     Dates: start: 20090601
  7. PRILOSEC [Concomitant]
     Indication: DRUG USE FOR UNKNOWN INDICATION
     Route: 048
  8. FOSAMAX [Concomitant]
     Indication: DRUG USE FOR UNKNOWN INDICATION
     Route: 048
  9. HYDROMORPHONE [Concomitant]
     Indication: WOUND TREATMENT
     Dosage: 4MG PRN, UP TO 6 QD
     Route: 048
  10. HYDROMORPHONE [Concomitant]
     Indication: PAIN
  11. MORPHINE SULFATE INJ [Concomitant]
     Indication: PAIN
     Dosage: 15MG TO 30MG PRN, BID
  12. SEPTRA [Concomitant]
     Indication: DRUG USE FOR UNKNOWN INDICATION
     Dosage: 3 DAYS PER WEEK: MONDAY, WEDNESDAY, AND FRIDAY
  13. IBUPROFEN [Concomitant]
     Indication: DRUG USE FOR UNKNOWN INDICATION
     Route: 048

REACTIONS (3)
  - BLISTER [None]
  - EYE SWELLING [None]
  - SKIN TIGHTNESS [None]
